FAERS Safety Report 5893061-4 (Version None)
Quarter: 2008Q3

REPORT INFORMATION
  Report Type: 
  Country: None (occurrence: None)
  Receive Date: 20080923
  Receipt Date: 20080507
  Transmission Date: 20090109
  Serious: No
  Sender: FDA-Public Use
  Company Number: US-ASTRAZENECA-2006UW22171

PATIENT
  Age: 611 Month
  Sex: Female
  Weight: 170.5 kg

DRUGS (3)
  1. SEROQUEL [Suspect]
     Indication: DEPRESSION
     Route: 048
     Dates: start: 19970501, end: 20020901
  2. SEROQUEL [Suspect]
     Indication: BIPOLAR DISORDER
     Route: 048
     Dates: start: 19970501, end: 20020901
  3. ZYPREXA/SYMBYAX (OLANZAPINE) [Concomitant]
     Dates: start: 20050701

REACTIONS (4)
  - NAUSEA [None]
  - OBESITY [None]
  - PAIN [None]
  - TYPE 2 DIABETES MELLITUS [None]
